FAERS Safety Report 6552909-0 (Version None)
Quarter: 2010Q1

REPORT INFORMATION
  Report Type: 
  Country: None (occurrence: None)
  Receive Date: 20100122
  Receipt Date: 20100104
  Transmission Date: 20100710
  Serious: Yes (Death, Life-Threatening, Hospitalization)
  Sender: FDA-Public Use
  Company Number: TW-JNJFOC-20080100306

PATIENT
  Age: 66 Year
  Sex: Male

DRUGS (17)
  1. DECITABINE (DECITABINE) LYOPHILIZED POWDER [Suspect]
     Indication: ACUTE MYELOID LEUKAEMIA
     Dosage: 33.6 MG, 1 IN 1 DAY, INTRAVENOUS
     Route: 042
     Dates: start: 20071217, end: 20071221
  2. HYDROXYUREA [Suspect]
     Indication: ACUTE MYELOID LEUKAEMIA
     Dosage: 500 MG, 3 IN 1 DAY, ORAL
     Route: 048
     Dates: start: 20071204, end: 20071224
  3. ALLOPURINOL (ALLOPURINOL) UNSPECIIFED [Concomitant]
  4. PIOGLITAZONE HYDROCHLORIDE (PIOGLITAZONE HYDROCHLORIDE) UNSPECIFIED [Concomitant]
  5. POTASSIUM CHLORIDE (POTASSIUM CHLORIDE) UNSPECIFIED [Concomitant]
  6. CIMETIDINE (CIMETIDINE) UNSPECIFIED [Concomitant]
  7. GLYCYRRHIZA (GLYCCYRRHIZA GLABRA EXTRACT) UNSPECIFIED [Concomitant]
  8. METOCLOPRAMIDE (METOCLOPRAMIDE) UNSPECIFIED [Concomitant]
  9. BETAMETHASONE (BETAMETHASONE) UNSPECIFIED [Concomitant]
  10. BACLOFEN (BACLOFEN) UNSPECIFIED [Concomitant]
  11. TRAMADOL (TRAMADOL) UNSPECIFIED [Concomitant]
  12. PIROXICAM [Concomitant]
  13. SIMETHICONE (DIMETICONE, ATIVATED) UNSPECIFIED [Concomitant]
  14. ETODOLAC (ETODOLAC) UNSPECIFIED [Concomitant]
  15. SENNA (SENNA ALEXANDRINA) POWDER [Concomitant]
  16. PROPOXYPHENE HCL AND ACETAMINOPHEN (APOREX) TABLET [Concomitant]
  17. KAOLIN (KAOLIN) UNSPECIFIED [Concomitant]

REACTIONS (16)
  - ANISOCYTOSIS [None]
  - ASTHENIA [None]
  - BRAIN COMPRESSION [None]
  - BRAIN HERNIATION [None]
  - CEREBRAL HAEMORRHAGE [None]
  - EPISTAXIS [None]
  - FALL [None]
  - FEBRILE NEUTROPENIA [None]
  - HEAD INJURY [None]
  - HEADACHE [None]
  - LEUKOCYTOSIS [None]
  - NORMOCHROMIC NORMOCYTIC ANAEMIA [None]
  - RIB FRACTURE [None]
  - SUBARACHNOID HAEMORRHAGE [None]
  - SUBDURAL HAEMATOMA [None]
  - THROMBOCYTOPENIA [None]
